FAERS Safety Report 23207412 (Version 1)
Quarter: 2023Q4

REPORT INFORMATION
  Report Type: Spontaneous
  Country: US (occurrence: US)
  Receive Date: 20231120
  Receipt Date: 20231120
  Transmission Date: 20240110
  Serious: Yes (Life-Threatening, Hospitalization, Other)
  Sender: FDA-Public Use
  Company Number: US-BRACCO-2023US04653

PATIENT
  Age: 44 Year
  Sex: Male

DRUGS (21)
  1. LUMASON [Suspect]
     Active Substance: SULFUR HEXAFLUORIDE
     Indication: Echocardiogram
     Dosage: UNK
     Route: 042
     Dates: start: 20230908, end: 20230908
  2. LUMASON [Suspect]
     Active Substance: SULFUR HEXAFLUORIDE
     Indication: Echocardiogram
     Dosage: UNK
     Route: 042
     Dates: start: 20230908, end: 20230908
  3. LUMASON [Suspect]
     Active Substance: SULFUR HEXAFLUORIDE
     Indication: Echocardiogram
     Dosage: UNK
     Route: 042
     Dates: start: 20230908, end: 20230908
  4. ZOFRAN [Concomitant]
     Active Substance: ONDANSETRON HYDROCHLORIDE
  5. MELATONIN [Concomitant]
     Active Substance: MELATONIN
  6. MAXIPIME [Concomitant]
     Active Substance: CEFEPIME HYDROCHLORIDE
  7. LASIX [Concomitant]
     Active Substance: FUROSEMIDE
  8. ALBUTEROL [Concomitant]
     Active Substance: ALBUTEROL
  9. HYDROCODONE [Concomitant]
     Active Substance: HYDROCODONE
  10. ELIQUIS [Concomitant]
     Active Substance: APIXABAN
  11. SEROQUEL [Concomitant]
     Active Substance: QUETIAPINE FUMARATE
  12. BENADRYL [Concomitant]
     Active Substance: DIPHENHYDRAMINE HYDROCHLORIDE
  13. LOPRESSOR [Concomitant]
     Active Substance: METOPROLOL TARTRATE
  14. INSULIN NOS [Concomitant]
     Active Substance: INSULIN NOS
  15. VITAMIN B6 [Concomitant]
     Active Substance: PYRIDOXINE HYDROCHLORIDE
  16. VITAMIN B1 [Concomitant]
     Active Substance: THIAMINE HYDROCHLORIDE
  17. LEXAPRO [Concomitant]
     Active Substance: ESCITALOPRAM OXALATE
  18. ASPIRIN [Concomitant]
     Active Substance: ASPIRIN
  19. POTASSIUM [Concomitant]
     Active Substance: POTASSIUM
  20. MAGNESIUM [Concomitant]
     Active Substance: MAGNESIUM
  21. TYLENOL [Concomitant]
     Active Substance: ACETAMINOPHEN

REACTIONS (2)
  - Dyspnoea [Recovering/Resolving]
  - Heart rate increased [Recovering/Resolving]

NARRATIVE: CASE EVENT DATE: 20230908
